FAERS Safety Report 4515254-0 (Version None)
Quarter: 2004Q4

REPORT INFORMATION
  Report Type: 
  Country: None (occurrence: None)
  Receive Date: 20041130
  Receipt Date: 20041130
  Transmission Date: 20050328
  Serious: Yes (Other)
  Sender: FDA-Public Use
  Company Number: None

PATIENT
  Age: 35 Year
  Sex: Male

DRUGS (7)
  1. OLANZAPINE [Suspect]
     Indication: AGGRESSION
     Dosage: 10 MG IM X 1
     Route: 030
     Dates: start: 20040709
  2. OLANZAPINE [Suspect]
     Indication: AGITATION
     Dosage: 10 MG IM X 1
     Route: 030
     Dates: start: 20040709
  3. LORAZEPAM [Suspect]
     Indication: AGGRESSION
     Dosage: 2 MG IM X 1
     Route: 030
     Dates: start: 20040709
  4. LORAZEPAM [Suspect]
     Indication: AGITATION
     Dosage: 2 MG IM X 1
     Route: 030
     Dates: start: 20040709
  5. OXCARBAZEPINE [Concomitant]
  6. LITHIUM [Concomitant]
  7. RISPERIDONE [Concomitant]

REACTIONS (3)
  - DIFFICULTY IN WALKING [None]
  - GAIT DISTURBANCE [None]
  - SEDATION [None]
